FAERS Safety Report 23577110 (Version 1)
Quarter: 2024Q1

REPORT INFORMATION
  Report Type: Spontaneous
  Country: US (occurrence: US)
  Receive Date: 20240228
  Receipt Date: 20240228
  Transmission Date: 20240410
  Serious: Yes (Death, Life-Threatening, Hospitalization, Other)
  Sender: FDA-Public Use
  Company Number: US-PFIZER INC-PV202400027106

PATIENT
  Age: 49 Year

DRUGS (4)
  1. HYDROCORTISONE SODIUM SUCCINATE [Interacting]
     Active Substance: HYDROCORTISONE SODIUM SUCCINATE
     Indication: Pneumoperitoneum
     Dosage: 100 MG, 3X/DAY (8 HOURS) (ON HOSPITAL DAY 2)
  2. HYDROCORTISONE SODIUM SUCCINATE [Interacting]
     Active Substance: HYDROCORTISONE SODIUM SUCCINATE
     Indication: Abdominal abscess
  3. SARGRAMOSTIM [Interacting]
     Active Substance: SARGRAMOSTIM
     Indication: Pneumoperitoneum
     Dosage: 500 UG, DAILY (ON HOSPITAL DAY 5)
  4. SARGRAMOSTIM [Interacting]
     Active Substance: SARGRAMOSTIM
     Indication: Abscess drainage

REACTIONS (3)
  - White blood cell count increased [Fatal]
  - Labelled drug-drug interaction medication error [Unknown]
  - Off label use [Unknown]
